FAERS Safety Report 18915721 (Version 3)
Quarter: 2021Q1

REPORT INFORMATION
  Report Type: Spontaneous
  Country: DE (occurrence: DE)
  Receive Date: 20210219
  Receipt Date: 20210301
  Transmission Date: 20210420
  Serious: Yes (Death, Other)
  Sender: FDA-Public Use
  Company Number: DE-B.I. PHARMACEUTICALS,INC./RIDGEFIELD-2021-BI-084096

PATIENT
  Age: 71 Year
  Sex: Male

DRUGS (2)
  1. VARGATEF [Suspect]
     Active Substance: NINTEDANIB
     Indication: ADENOCARCINOMA
     Dosage: DAILY DOSE: 1?0?0
     Dates: start: 20201001
  2. DOCETAXEL. [Suspect]
     Active Substance: DOCETAXEL
     Indication: ADENOCARCINOMA

REACTIONS (13)
  - Metastases to spleen [Unknown]
  - Metastases to bone [Unknown]
  - Malignant neoplasm progression [Unknown]
  - Portal vein thrombosis [Unknown]
  - Colitis ischaemic [Unknown]
  - Diarrhoea [Unknown]
  - Death [Fatal]
  - Metastases to liver [Unknown]
  - Splenic vein thrombosis [Unknown]
  - Pyrexia [Unknown]
  - Pemphigus [Unknown]
  - Malignant neoplasm progression [Unknown]
  - Diarrhoea [Unknown]

NARRATIVE: CASE EVENT DATE: 20200918
